FAERS Safety Report 6089036-5 (Version None)
Quarter: 2009Q1

REPORT INFORMATION
  Report Type: 
  Country: None (occurrence: None)
  Receive Date: 20090224
  Receipt Date: 20090220
  Transmission Date: 20090719
  Serious: Yes (Hospitalization)
  Sender: FDA-Public Use
  Company Number: A0769818A

PATIENT
  Age: 75 Year
  Sex: Female

DRUGS (5)
  1. CARVEDILOL [Suspect]
     Indication: HYPERTENSION
     Dosage: 10MG PER DAY
     Route: 048
     Dates: start: 20081001, end: 20081101
  2. ATORVASTATIN [Concomitant]
  3. VALSARTAN [Concomitant]
  4. LEVOTHYROXINE SODIUM [Concomitant]
  5. CONJUGATED ESTROGEN [Concomitant]

REACTIONS (3)
  - CARDIAC PACEMAKER INSERTION [None]
  - FATIGUE [None]
  - FEELING ABNORMAL [None]
